FAERS Safety Report 13861048 (Version 2)
Quarter: 2017Q3

REPORT INFORMATION
  Report Type: Spontaneous
  Country: US (occurrence: US)
  Receive Date: 20170811
  Receipt Date: 20170814
  Transmission Date: 20171127
  Serious: No
  Sender: FDA-Public Use
  Company Number: US-PFIZER INC-2017347567

PATIENT
  Sex: Male

DRUGS (5)
  1. DUTASTERIDE. [Concomitant]
     Active Substance: DUTASTERIDE
     Indication: PROSTATOMEGALY
     Dosage: 0.5 MG, DAILY
     Route: 048
  2. LYRICA [Suspect]
     Active Substance: PREGABALIN
     Indication: INTERVERTEBRAL DISC PROTRUSION
     Dosage: 100 MG, TWICE A DAY
     Route: 048
  3. ZOLPIDEM TARTRATE. [Concomitant]
     Active Substance: ZOLPIDEM TARTRATE
     Indication: SLEEP DISORDER
     Dosage: 12.5 MG, DAILY
     Route: 048
  4. NIFEDIPINE. [Concomitant]
     Active Substance: NIFEDIPINE
     Indication: HYPERTENSION
     Dosage: 30 MG, DAILY
     Route: 048
  5. ROSUVASTATIN. [Concomitant]
     Active Substance: ROSUVASTATIN
     Indication: BLOOD CHOLESTEROL INCREASED
     Dosage: 10MG ONE TABLET DAILY
     Route: 048

REACTIONS (1)
  - Eye disorder [Not Recovered/Not Resolved]
